FAERS Safety Report 14881776 (Version 1)
Quarter: 2018Q2

REPORT INFORMATION
  Report Type: Spontaneous
  Country: US (occurrence: US)
  Receive Date: 20180425
  Receipt Date: 20180425
  Transmission Date: 20180711
  Serious: Yes (Other)
  Sender: FDA-Public Use
  Company Number: None

PATIENT
  Age: 48 Year
  Sex: Female
  Weight: 124.06 kg

DRUGS (1)
  1. LEVOTHYROXINE-LIOTHYRON 120MG - 2GR [Suspect]
     Active Substance: LEVOTHYROXINE\LIOTHYRONINE
     Indication: AUTOIMMUNE THYROIDITIS
     Dates: start: 201710, end: 201804

REACTIONS (4)
  - Chest discomfort [None]
  - Anosmia [None]
  - Dyspnoea [None]
  - Ageusia [None]

NARRATIVE: CASE EVENT DATE: 20180410
